FAERS Safety Report 6815708-8 (Version None)
Quarter: 2010Q3

REPORT INFORMATION
  Report Type: 
  Country: None (occurrence: None)
  Receive Date: 20100702
  Receipt Date: 20100624
  Transmission Date: 20110219
  Serious: Yes (Hospitalization)
  Sender: FDA-Public Use
  Company Number: US-AMGEN-KDC417130

PATIENT
  Sex: Female
  Weight: 116.8 kg

DRUGS (3)
  1. ETANERCEPT [Suspect]
     Indication: PSORIASIS
     Route: 058
     Dates: start: 20100415
  2. ETANERCEPT - NON-AMGEN IMP (METHOTREXATE - BLINDED) [Suspect]
     Route: 048
     Dates: start: 20100415
  3. ALBUTEROL SULATE [Concomitant]

REACTIONS (1)
  - ASTHMA [None]
